FAERS Safety Report 20202775 (Version 1)
Quarter: 2021Q4

REPORT INFORMATION
  Report Type: Spontaneous
  Country: US (occurrence: US)
  Receive Date: 20211218
  Receipt Date: 20211218
  Transmission Date: 20220303
  Serious: Yes (Other)
  Sender: FDA-Public Use
  Company Number: US-SA-SAC20211216000165

PATIENT
  Age: 52 Year
  Sex: Male

DRUGS (17)
  1. DUPIXENT [Suspect]
     Active Substance: DUPILUMAB
     Indication: Rhinitis allergic
     Dosage: 300 MG, QOW
     Route: 058
     Dates: start: 20211020
  2. AMOXICILLIN [Concomitant]
     Active Substance: AMOXICILLIN
     Dosage: 100 MG
  3. ATENOLOL [Concomitant]
     Active Substance: ATENOLOL
     Dosage: 100MG
  4. AZELASTINE [Concomitant]
     Active Substance: AZELASTINE
  5. CLONAZEPAM [Concomitant]
     Active Substance: CLONAZEPAM
  6. DILTIAZEM [Concomitant]
     Active Substance: DILTIAZEM
  7. EPINEPHRINE [Concomitant]
     Active Substance: EPINEPHRINE
  8. FINASTERIDE [Concomitant]
     Active Substance: FINASTERIDE
  9. FLOVENT [Concomitant]
     Active Substance: FLUTICASONE PROPIONATE
  10. LAMOTRIGINE [Concomitant]
     Active Substance: LAMOTRIGINE
  11. LEVOFLOXACIN [Concomitant]
     Active Substance: LEVOFLOXACIN
  12. MONTELUKAST [Concomitant]
     Active Substance: MONTELUKAST SODIUM
     Dosage: 20MG
  13. OLMESARTAN [Concomitant]
     Active Substance: OLMESARTAN
  14. OMEPRAZOLE [Concomitant]
     Active Substance: OMEPRAZOLE
  15. ONDANSETRON [Concomitant]
     Active Substance: ONDANSETRON
  16. PHENTERMINE [Concomitant]
     Active Substance: PHENTERMINE
  17. PROPRANOLOL [Concomitant]
     Active Substance: PROPRANOLOL HYDROCHLORIDE

REACTIONS (17)
  - Haematemesis [Unknown]
  - Suicidal ideation [Unknown]
  - Insomnia [Unknown]
  - Hypertension [Unknown]
  - Fatigue [Unknown]
  - Illness [Unknown]
  - Depression [Unknown]
  - Pruritus [Unknown]
  - Skin exfoliation [Unknown]
  - Injection site bruising [Unknown]
  - Oropharyngeal pain [Unknown]
  - Epinephrine increased [Unknown]
  - Oesophageal disorder [Unknown]
  - Nasal congestion [Unknown]
  - Vomiting [Unknown]
  - Pain of skin [Unknown]
  - Product use in unapproved indication [Unknown]

NARRATIVE: CASE EVENT DATE: 20211020
